FAERS Safety Report 26217762 (Version 1)
Quarter: 2025Q4

REPORT INFORMATION
  Report Type: Spontaneous
  Country: IN (occurrence: IN)
  Receive Date: 20251231
  Receipt Date: 20251231
  Transmission Date: 20260117
  Serious: Yes (Hospitalization)
  Sender: Alora Pharma
  Company Number: IN-ACELLA PHARMACEUTICALS, LLC-2025ALO02680

PATIENT
  Age: 12 Year
  Sex: Female
  Weight: 25 kg

DRUGS (1)
  1. PHENYTOIN SODIUM [Suspect]
     Active Substance: PHENYTOIN SODIUM
     Indication: Generalised tonic-clonic seizure
     Dosage: 24 MG/KG/DAY
     Route: 065

REACTIONS (6)
  - Seizure [Recovered/Resolved]
  - Stupor [Recovered/Resolved]
  - Toxicity to various agents [Recovered/Resolved]
  - Cerebellar atrophy [Recovered/Resolved]
  - Lethargy [Recovered/Resolved]
  - Ataxia [Recovered/Resolved]
